FAERS Safety Report 10483639 (Version 5)
Quarter: 2014Q4

REPORT INFORMATION
  Report Type: Spontaneous
  Country: MY (occurrence: None)
  Receive Date: 20140926
  Receipt Date: 20141029
  Transmission Date: 20150528
  Serious: Yes (Hospitalization)
  Sender: FDA-Public Use
  Company Number: 2014MPI01171

PATIENT
  Age: 26 Year
  Sex: Female
  Weight: 44 kg

DRUGS (6)
  1. BRENTUXIMAB VEDOTIN [Suspect]
     Active Substance: BRENTUXIMAB VEDOTIN
     Indication: HODGKIN^S DISEASE
     Route: 042
     Dates: start: 20140721, end: 20140902
  2. TRAMADOL (TRAMADOL HYDROCHLORIDE) [Concomitant]
     Active Substance: TRAMADOL HYDROCHLORIDE
  3. FOLATE (FOLICACID) [Concomitant]
  4. CIPROFLOXACIN (CIPROFLOXACIN HYDROCHLORIDE) [Concomitant]
  5. B-COMPLEX (NICOTINAMIDE, PYRIDOXINE HYDROCHLORIDE, RIBOFLAVIN, THIAMINE HYDROCHLORIDE) [Concomitant]
  6. VOLTAREN [Concomitant]
     Active Substance: DICLOFENAC SODIUM

REACTIONS (16)
  - Serum sickness [None]
  - Haemoglobin decreased [None]
  - Peripheral swelling [None]
  - Myositis [None]
  - Blood potassium decreased [None]
  - Blood thyroid stimulating hormone increased [None]
  - Blood creatine phosphokinase increased [None]
  - Myalgia [None]
  - Abasia [None]
  - Pyrexia [None]
  - Pain in extremity [None]
  - Autoimmune disorder [None]
  - Blood creatinine decreased [None]
  - Protein urine present [None]
  - Blood creatine phosphokinase MB increased [None]
  - Arthralgia [None]

NARRATIVE: CASE EVENT DATE: 20140910
